FAERS Safety Report 8528791-9 (Version None)
Quarter: 2012Q3

REPORT INFORMATION
  Report Type: 
  Country: None (occurrence: None)
  Receive Date: 20120723
  Receipt Date: 20120718
  Transmission Date: 20120928
  Serious: Yes (Other)
  Sender: FDA-Public Use
  Company Number: US-AMGEN-USASP2012034559

PATIENT
  Age: 75 Year
  Sex: Female
  Weight: 112.47 kg

DRUGS (27)
  1. CLARITIN                           /00917501/ [Concomitant]
     Dosage: 10 MG, QD
     Route: 048
  2. IMODIUM [Concomitant]
     Dosage: UNK
  3. METHOTREXATE SODIUM [Concomitant]
     Indication: RHEUMATOID ARTHRITIS
     Dosage: 2.5 MG, 4 TIMES/WK
     Route: 048
  4. MYSOLINE [Concomitant]
     Dosage: 50 MG, QID
     Route: 048
  5. ENBREL [Suspect]
     Indication: SCLERODERMA
     Dosage: 50 MG, QWK
     Route: 058
     Dates: start: 20111101, end: 20120401
  6. CALCIUM + VITAMIN D                /01483701/ [Concomitant]
     Dosage: 1 DF, QD
     Route: 048
  7. SIMVASTATIN [Concomitant]
     Dosage: UNK
  8. FOLVITE                            /00024201/ [Concomitant]
     Dosage: 1 MG, UNK
     Route: 048
  9. MULTI-VITAMINS [Concomitant]
     Dosage: UNK
     Route: 048
  10. ENBREL [Suspect]
     Indication: RHEUMATOID ARTHRITIS
  11. SYNTHROID [Concomitant]
     Dosage: 100 MUG, QD
     Route: 048
  12. VITAMIN D [Concomitant]
     Dosage: 400 UNIT, QD
     Route: 048
  13. EXTRA STRENGTH TYLENOL [Concomitant]
     Dosage: 1000 MG, Q6H AS NEEDED
     Route: 048
  14. BENADRYL [Concomitant]
     Dosage: 25 MG, UNK
  15. EFFEXOR [Concomitant]
     Dosage: 225 MG, QD
     Route: 048
  16. DIOVAN [Concomitant]
     Dosage: 80 MG, QD
     Route: 048
  17. PRILOSEC [Concomitant]
     Dosage: 20 MG, QD
     Route: 048
  18. REMERON [Concomitant]
     Dosage: 15 MG, QD
     Route: 048
  19. MOBIC [Concomitant]
     Dosage: 15 MG, QD
     Route: 048
  20. CYANOCOBALAMIN W/FOLIC ACID [Concomitant]
     Dosage: 10 MG/L, QWK
     Route: 048
  21. ALBUTEROL [Concomitant]
     Dosage: 2 PUFFS INHALED, INH, Q4-6H
  22. LANTUS [Concomitant]
     Route: 058
  23. ASPIRIN [Concomitant]
     Dosage: 81 MG, UNK
  24. ZOCOR [Concomitant]
     Dosage: 20 MG, QD
     Route: 048
  25. CELEBREX [Concomitant]
     Dosage: 200 MG, UNK
  26. GLUCOTROL [Concomitant]
     Dosage: 5 MG, UNK
  27. HYDRODIURIL [Concomitant]
     Dosage: 25 MG, UNK

REACTIONS (8)
  - ARTHRALGIA [None]
  - DRUG INEFFECTIVE [None]
  - IRIDOCYCLITIS [None]
  - PAIN [None]
  - UVEITIS-GLAUCOMA-HYPHAEMA SYNDROME [None]
  - CATARACT OPERATION [None]
  - VISUAL IMPAIRMENT [None]
  - DYSPHAGIA [None]
